FAERS Safety Report 5691874-5 (Version None)
Quarter: 2008Q2

REPORT INFORMATION
  Report Type: 
  Country: None (occurrence: None)
  Receive Date: 20080402
  Receipt Date: 20080325
  Transmission Date: 20081010
  Serious: No
  Sender: FDA-Public Use
  Company Number: FR-ASTRAZENECA-2008CG00160

PATIENT
  Age: 92 Day
  Sex: Female
  Weight: 5.7 kg

DRUGS (3)
  1. EMLA [Suspect]
     Indication: LOCAL ANAESTHESIA
     Dosage: HALF PATCH ON EACH LEG
     Route: 061
     Dates: start: 20071023, end: 20071023
  2. PREVENAR [Suspect]
     Indication: IMMUNISATION
     Dosage: INJECTION INTO THE LEFT THIGH
     Dates: start: 20071023, end: 20071023
  3. PENTAVAC [Concomitant]
     Indication: IMMUNISATION
     Dates: start: 20071023, end: 20071023

REACTIONS (2)
  - CRYING [None]
  - GENERALISED ERYTHEMA [None]
